FAERS Safety Report 15534157 (Version 1)
Quarter: 2018Q4

REPORT INFORMATION
  Report Type: Spontaneous
  Country: US (occurrence: US)
  Receive Date: 20181019
  Receipt Date: 20181019
  Transmission Date: 20190205
  Serious: No
  Sender: FDA-Public Use
  Company Number: US-SA-2018SA288560

PATIENT
  Sex: Male

DRUGS (2)
  1. TOUJEO [Suspect]
     Active Substance: INSULIN GLARGINE
     Indication: DIABETES MELLITUS
     Dosage: 12 IU,EVERY MORNING AT 7 AM
  2. HUMALOG [Suspect]
     Active Substance: INSULIN LISPRO
     Dosage: 3-4 UNITS

REACTIONS (2)
  - Product storage error [Unknown]
  - Blood glucose increased [Unknown]
